FAERS Safety Report 21902408 (Version 1)
Quarter: 2023Q1

REPORT INFORMATION
  Report Type: Spontaneous
  Country: US (occurrence: US)
  Receive Date: 20230124
  Receipt Date: 20230124
  Transmission Date: 20230418
  Serious: Yes (Other)
  Sender: FDA-Public Use
  Company Number: US-SUN PHARMACEUTICAL INDUSTRIES LTD-2023R1-374024

PATIENT
  Age: 43 Year
  Sex: Female

DRUGS (11)
  1. ATORVASTATIN [Suspect]
     Active Substance: ATORVASTATIN
     Indication: Hypertriglyceridaemia
     Dosage: 20 MILLIGRAM, DAILY
     Route: 048
  2. FENOFIBRATE [Suspect]
     Active Substance: FENOFIBRATE
     Indication: Hypertriglyceridaemia
     Dosage: 54 MILLIGRAM, DAILY
     Route: 048
  3. ACETAMINOPHEN\HYDROCODONE [Suspect]
     Active Substance: ACETAMINOPHEN\HYDROCODONE
     Indication: Pain management
     Dosage: UNK,5MG AND 325 MG
     Route: 048
  4. ROSUVASTATIN [Suspect]
     Active Substance: ROSUVASTATIN
     Indication: Hypertriglyceridaemia
     Dosage: 5 MILLIGRAM, DAILY
     Route: 048
  5. OMEGA-3-ACID ETHYL ESTER [Suspect]
     Active Substance: OMEGA-3-ACID ETHYL ESTERS
     Indication: Hypertriglyceridaemia
     Dosage: 2 GRAM, BID
     Route: 048
  6. MORPHINE [Suspect]
     Active Substance: MORPHINE
     Indication: Pain management
     Dosage: UNK 2MG
     Route: 065
  7. INSULIN NOS [Suspect]
     Active Substance: INSULIN NOS
     Indication: Hypertriglyceridaemia
     Dosage: UNK 10 UNITS/HOUR
     Route: 065
  8. INSULIN NOS [Suspect]
     Active Substance: INSULIN NOS
     Dosage: UNK 15 UNITS/HOUR
     Route: 065
  9. INSULIN NOS [Suspect]
     Active Substance: INSULIN NOS
     Dosage: UNK 25 UNITS/HOUR
     Route: 065
  10. ICOSAPENT ETHYL [Suspect]
     Active Substance: ICOSAPENT ETHYL
     Indication: Product used for unknown indication
     Dosage: 2 GRAM, BID
     Route: 048
  11. HEPARIN [Suspect]
     Active Substance: HEPARIN SODIUM
     Indication: Prophylaxis
     Dosage: UNK 5,000 UNITS EVERY 8 HOURS
     Route: 065

REACTIONS (3)
  - Hypoglycaemia [Unknown]
  - Hypokalaemia [Unknown]
  - Therapeutic product effect incomplete [Unknown]
